FAERS Safety Report 7057778-0 (Version None)
Quarter: 2010Q4

REPORT INFORMATION
  Report Type: 
  Country: None (occurrence: None)
  Receive Date: 20101022
  Receipt Date: 20101011
  Transmission Date: 20110411
  Serious: Yes (Death)
  Sender: FDA-Public Use
  Company Number: US-PFIZER INC-2010107902

PATIENT
  Sex: Female
  Weight: 36.281 kg

DRUGS (4)
  1. LYRICA [Suspect]
     Indication: RESTLESS LEGS SYNDROME
     Dosage: 25 MG, 1X/DAY
     Dates: start: 20100801
  2. TRAZODONE [Concomitant]
     Dosage: UNK
  3. LEXAPRO [Concomitant]
     Dosage: UNK
  4. VICODIN [Concomitant]
     Dosage: UNK, AS NEEDED

REACTIONS (2)
  - DEATH [None]
  - POOR QUALITY SLEEP [None]
